FAERS Safety Report 9706251 (Version 1)
Quarter: 2013Q4

REPORT INFORMATION
  Report Type: Report from Study
  Country: CA (occurrence: CA)
  Receive Date: 20131125
  Receipt Date: 20131125
  Transmission Date: 20140711
  Serious: Yes (Death)
  Sender: FDA-Public Use
  Company Number: CA-ROCHE-1306707

PATIENT
  Sex: Female
  Weight: 72.6 kg

DRUGS (3)
  1. XELODA [Suspect]
     Indication: COLORECTAL CANCER
     Dosage: START DATE: 26/APR/2013
     Route: 048
     Dates: end: 201309
  2. SYNTHROID [Concomitant]
  3. LIPITOR [Concomitant]

REACTIONS (2)
  - Disease progression [Fatal]
  - Drug effect decreased [Fatal]
